FAERS Safety Report 12091394 (Version 1)
Quarter: 2016Q1

REPORT INFORMATION
  Report Type: Spontaneous
  Country: FR (occurrence: FR)
  Receive Date: 20160218
  Receipt Date: 20160218
  Transmission Date: 20160526
  Serious: Yes (Hospitalization)
  Sender: FDA-Public Use
  Company Number: FR-SA-2016SA025089

PATIENT
  Age: 30 Year
  Sex: Female

DRUGS (19)
  1. AERIUS [Concomitant]
     Active Substance: DESLORATADINE
     Dosage: LONG TERM
     Route: 065
  2. DOLIPRANE [Concomitant]
     Active Substance: ACETAMINOPHEN
     Route: 065
     Dates: start: 20151125
  3. OROZAMUDOL [Concomitant]
     Active Substance: TRAMADOL
     Dosage: SECOND DOSE AT 18:00 PM
     Route: 065
     Dates: start: 20151130
  4. DOLIPRANE [Concomitant]
     Active Substance: ACETAMINOPHEN
     Route: 065
     Dates: start: 20151126
  5. DOLIPRANE [Concomitant]
     Active Substance: ACETAMINOPHEN
     Route: 065
     Dates: start: 20151130
  6. DOLIPRANE [Concomitant]
     Active Substance: ACETAMINOPHEN
     Route: 065
     Dates: start: 20151201
  7. OROZAMUDOL [Concomitant]
     Active Substance: TRAMADOL
     Route: 065
     Dates: start: 20151201
  8. OROZAMUDOL [Concomitant]
     Active Substance: TRAMADOL
     Route: 065
     Dates: start: 20151204
  9. LOVENOX [Suspect]
     Active Substance: ENOXAPARIN SODIUM
     Route: 058
     Dates: start: 20151125
  10. CERAZETTE [Concomitant]
     Active Substance: DESOGESTREL
     Dosage: LONG TERM
     Route: 065
  11. ANDROCUR [Concomitant]
     Active Substance: CYPROTERONE ACETATE
     Dosage: LONG TERM
     Route: 065
  12. DOLIPRANE [Concomitant]
     Active Substance: ACETAMINOPHEN
     Route: 065
     Dates: start: 20151201
  13. OROZAMUDOL [Concomitant]
     Active Substance: TRAMADOL
     Dosage: SECOND DOSE AT 18:00 PM
     Route: 065
     Dates: start: 20151202
  14. OROZAMUDOL [Concomitant]
     Active Substance: TRAMADOL
     Route: 065
     Dates: start: 20151205, end: 20151211
  15. ZINC [Concomitant]
     Active Substance: ZINC\ZINC CHLORIDE
     Route: 065
  16. DOLIPRANE [Concomitant]
     Active Substance: ACETAMINOPHEN
     Dosage: SECOND DOSE AT 14:00 PM
     Route: 065
     Dates: start: 20151129
  17. DOLIPRANE [Concomitant]
     Active Substance: ACETAMINOPHEN
     Dosage: SECOND DOSE AT 22:00 PM
     Route: 065
     Dates: start: 20151127
  18. PREVISCAN [Suspect]
     Active Substance: FLUINDIONE
     Route: 048
     Dates: start: 20151126, end: 20151203
  19. OROZAMUDOL [Concomitant]
     Active Substance: TRAMADOL
     Route: 065
     Dates: start: 20151129

REACTIONS (1)
  - Hepatitis [Recovering/Resolving]

NARRATIVE: CASE EVENT DATE: 20151204
